FAERS Safety Report 5476025-4 (Version None)
Quarter: 2007Q4

REPORT INFORMATION
  Report Type: 
  Country: None (occurrence: None)
  Receive Date: 20071003
  Receipt Date: 20070924
  Transmission Date: 20080405
  Serious: Yes (Other)
  Sender: FDA-Public Use
  Company Number: BE-ASTRAZENECA-2007AC01857

PATIENT
  Age: 30 Year
  Sex: Female

DRUGS (2)
  1. ROPIVACAINE [Suspect]
     Indication: ANAESTHESIA
     Route: 008
  2. SUFENTANIL [Concomitant]
     Indication: FEELING OF RELAXATION

REACTIONS (1)
  - LOSS OF CONSCIOUSNESS [None]
